FAERS Safety Report 8244893-9 (Version None)
Quarter: 2012Q1

REPORT INFORMATION
  Report Type: 
  Country: None (occurrence: None)
  Receive Date: 20120329
  Receipt Date: 20110812
  Transmission Date: 20120608
  Serious: No
  Sender: FDA-Public Use
  Company Number: US-MYLANLABS-2011S1016905

PATIENT
  Sex: Female

DRUGS (2)
  1. FENTANYL-100 [Suspect]
     Indication: NECK PAIN
     Dosage: Q72H
     Route: 062
     Dates: start: 20090101
  2. FENTANYL-100 [Suspect]
     Indication: BACK PAIN
     Dosage: Q72H
     Route: 062
     Dates: start: 20090101

REACTIONS (4)
  - TREMOR [None]
  - WITHDRAWAL SYNDROME [None]
  - BACK PAIN [None]
  - NECK PAIN [None]
